FAERS Safety Report 16682801 (Version 2)
Quarter: 2019Q3

REPORT INFORMATION
  Report Type: Spontaneous
  Country: US (occurrence: US)
  Receive Date: 20190808
  Receipt Date: 20190809
  Transmission Date: 20191004
  Serious: No
  Sender: FDA-Public Use
  Company Number: US-PFIZER INC-2019337155

PATIENT
  Age: 79 Year
  Sex: Female

DRUGS (1)
  1. ZOLOFT [Suspect]
     Active Substance: SERTRALINE HYDROCHLORIDE
     Dosage: 0.5 DF, 1X/DAY [1/2 PILL OF 25MG AT 12:30PM EVERY DAY]

REACTIONS (5)
  - Gastrointestinal disorder [Unknown]
  - Vision blurred [Unknown]
  - Tremor [Unknown]
  - Headache [Unknown]
  - Poor quality sleep [Unknown]
